FAERS Safety Report 5441791-0 (Version None)
Quarter: 2007Q3

REPORT INFORMATION
  Report Type: 
  Country: None (occurrence: None)
  Receive Date: 20070830
  Receipt Date: 20070830
  Transmission Date: 20080115
  Serious: No
  Sender: FDA-Public Use
  Company Number: None

PATIENT
  Age: 64 Year
  Sex: Male
  Weight: 79.3795 kg

DRUGS (2)
  1. LIPITOR [Suspect]
     Indication: BLOOD CHOLESTEROL
     Dosage: 10MG.  1 PER DAY  PO
     Route: 048
     Dates: start: 20040424, end: 20070123
  2. ZOCOR [Suspect]
     Indication: BLOOD CHOLESTEROL
     Dosage: 20MG.  1 PER DAY  PO
     Route: 048

REACTIONS (1)
  - ARTHRALGIA [None]
